FAERS Safety Report 11502628 (Version 3)
Quarter: 2016Q4

REPORT INFORMATION
  Report Type: Spontaneous
  Country: US (occurrence: US)
  Receive Date: 20150914
  Receipt Date: 20161230
  Transmission Date: 20170206
  Serious: Yes (Hospitalization)
  Sender: FDA-Public Use
  Company Number: US-ASTELLAS-2015US022874

PATIENT
  Age: 83 Year
  Sex: Male

DRUGS (7)
  1. XTANDI [Suspect]
     Active Substance: ENZALUTAMIDE
     Dosage: 2 DF, ONCE DAILY, (40 MG X 2)
     Route: 065
     Dates: start: 20150624
  2. XTANDI [Suspect]
     Active Substance: ENZALUTAMIDE
     Indication: PROSTATE CANCER
     Dosage: 4 DF, ONCE DAILY, (40 MG X 4)
     Route: 048
     Dates: start: 20150520, end: 20150527
  3. XTANDI [Suspect]
     Active Substance: ENZALUTAMIDE
     Dosage: 1 MG, ONCE DAILY, (40 MG X 1)
     Route: 048
     Dates: start: 20150607
  4. XTANDI [Suspect]
     Active Substance: ENZALUTAMIDE
     Dosage: 4 DF, ONCE DAILY, (40 MG X4)
     Route: 065
     Dates: start: 20150708
  5. XTANDI [Suspect]
     Active Substance: ENZALUTAMIDE
     Route: 065
     Dates: start: 201510, end: 201612
  6. XTANDI [Suspect]
     Active Substance: ENZALUTAMIDE
     Dosage: 3 DF, ONCE DAILY, (40 MG X 3)
     Route: 048
     Dates: start: 201507
  7. XTANDI [Suspect]
     Active Substance: ENZALUTAMIDE
     Route: 048
     Dates: start: 201612

REACTIONS (5)
  - Pneumonia [Recovered/Resolved]
  - Cardiac disorder [Unknown]
  - Inappropriate schedule of drug administration [Unknown]
  - Chronic obstructive pulmonary disease [Recovering/Resolving]
  - Somnolence [Recovering/Resolving]

NARRATIVE: CASE EVENT DATE: 20150626
